FAERS Safety Report 4273497-8 (Version None)
Quarter: 2004Q1

REPORT INFORMATION
  Report Type: 
  Country: None (occurrence: None)
  Receive Date: 20040119
  Receipt Date: 20031211
  Transmission Date: 20041129
  Serious: Yes (Other)
  Sender: FDA-Public Use
  Company Number: JP-GLAXOSMITHKLINE-B0316789A

PATIENT
  Age: 62 Year
  Sex: Male
  Weight: 81 kg

DRUGS (10)
  1. ZEFIX [Suspect]
     Indication: HEPATITIS B
     Dosage: 100MG PER DAY
     Route: 048
     Dates: start: 20010209, end: 20020430
  2. METILDIGOXIN [Concomitant]
     Indication: ATRIAL FIBRILLATION
     Dosage: .1MG PER DAY
     Route: 048
  3. AMLODIPINE BESYLATE [Concomitant]
     Indication: HYPERTENSION
     Dosage: 5MG PER DAY
     Route: 048
     Dates: start: 19991227, end: 20030401
  4. SIMVASTATIN [Concomitant]
     Indication: HYPERLIPIDAEMIA
     Dosage: 5MG PER DAY
     Route: 048
  5. ALLOPURINOL [Concomitant]
     Dosage: 100MG PER DAY
     Route: 048
     Dates: start: 20000327
  6. FAMOTIDINE [Concomitant]
     Indication: GASTRIC ULCER
     Dosage: 40MG PER DAY
     Route: 048
  7. ECABET SODIUM [Concomitant]
     Indication: GASTRIC ULCER
     Dosage: 3G PER DAY
     Route: 048
  8. REBAMIPIDE [Concomitant]
     Indication: GASTRIC ULCER
     Dosage: 200MG PER DAY
     Route: 048
  9. TICLOPIDINE HCL [Concomitant]
     Indication: ATRIAL FIBRILLATION
     Dosage: 200MG PER DAY
     Route: 048
  10. CARVEDILOL [Concomitant]
     Indication: HYPERTENSION
     Dosage: 20MG PER DAY
     Route: 048
     Dates: start: 19991025

REACTIONS (1)
  - HEPATIC NEOPLASM MALIGNANT [None]
